FAERS Safety Report 5771835-8 (Version None)
Quarter: 2008Q2

REPORT INFORMATION
  Report Type: 
  Country: None (occurrence: None)
  Receive Date: 20080612
  Receipt Date: 20080612
  Transmission Date: 20081010
  Serious: Yes (Hospitalization)
  Sender: FDA-Public Use
  Company Number: None

PATIENT
  Age: 26 Year
  Sex: Male
  Weight: 89 kg

DRUGS (1)
  1. TRIMETHOPRIM-SULFAMETHOXAZOLE [Suspect]
     Dosage: 1 TAB BID PO
     Route: 048
     Dates: start: 20080508, end: 20080513

REACTIONS (5)
  - FEBRILE NEUTROPENIA [None]
  - ILL-DEFINED DISORDER [None]
  - PRURITUS [None]
  - RASH [None]
  - URTICARIA [None]
